FAERS Safety Report 8337676-2 (Version None)
Quarter: 2012Q2

REPORT INFORMATION
  Report Type: 
  Country: None (occurrence: None)
  Receive Date: 20120504
  Receipt Date: 20120504
  Transmission Date: 20120825
  Serious: Yes (Life-Threatening, Other)
  Sender: FDA-Public Use
  Company Number: None

PATIENT
  Age: 42 Year
  Sex: Female
  Weight: 73.481 kg

DRUGS (8)
  1. RELPAX [Concomitant]
     Route: 048
  2. ESTRATEST [Concomitant]
     Route: 048
  3. LORAZEPAM [Concomitant]
     Route: 048
  4. ZOMIG [Concomitant]
     Route: 048
  5. SOMA [Concomitant]
     Route: 048
  6. TOPIRAMATE [Suspect]
     Indication: DEPRESSION
     Dosage: |DOSAGETEXT: TOPIRIMATE 100 MG||STRENGTH: 100 MG||FREQ: BID`||ROUTE: ORAL|
     Route: 048
     Dates: start: 20090105, end: 20120501
  7. TOPIRAMATE [Suspect]
     Indication: SUICIDAL IDEATION
     Dosage: |DOSAGETEXT: TOPIRIMATE 100 MG||STRENGTH: 100 MG||FREQ: BID`||ROUTE: ORAL|
     Route: 048
     Dates: start: 20090105, end: 20120501
  8. NORCO [Concomitant]
     Route: 048

REACTIONS (6)
  - WEIGHT DECREASED [None]
  - SUICIDAL IDEATION [None]
  - DRUG EFFECT DECREASED [None]
  - COGNITIVE DISORDER [None]
  - CONDITION AGGRAVATED [None]
  - DEPRESSION [None]
